FAERS Safety Report 21760622 (Version 1)
Quarter: 2022Q4

REPORT INFORMATION
  Report Type: Spontaneous
  Country: US (occurrence: None)
  Receive Date: 20221220
  Receipt Date: 20221220
  Transmission Date: 20230113
  Serious: No
  Sender: FDA-Public Use
  Company Number: None

PATIENT
  Age: 62 Year
  Sex: Female
  Weight: 78.93 kg

DRUGS (1)
  1. STELARA [Suspect]
     Active Substance: USTEKINUMAB
     Indication: Psoriatic arthropathy
     Dosage: INJECT 45MG SUBCUTANEOUSLY EVERY 12 WEEKS AS DIRECTED.     ?
     Route: 058
     Dates: start: 202101

REACTIONS (1)
  - Ear infection [None]
